FAERS Safety Report 7671043-X (Version None)
Quarter: 2011Q3

REPORT INFORMATION
  Report Type: 
  Country: None (occurrence: None)
  Receive Date: 20110809
  Receipt Date: 20110728
  Transmission Date: 20111222
  Serious: Yes (Hospitalization, Other)
  Sender: FDA-Public Use
  Company Number: JP-JNJFOC-20110800673

PATIENT
  Age: 8 Decade
  Sex: Female

DRUGS (6)
  1. LENDORMIN [Concomitant]
     Indication: DELIRIUM
     Route: 048
     Dates: end: 20110708
  2. PROCHLORPERAZINE [Concomitant]
     Indication: VOMITING
     Route: 065
     Dates: start: 20110618, end: 20110704
  3. LYRICA [Concomitant]
     Indication: PAIN
     Route: 048
     Dates: start: 20110701, end: 20110708
  4. MORPHINE HCL ELIXIR [Suspect]
     Indication: PAIN
     Dosage: 10
     Route: 065
     Dates: start: 20110616, end: 20110616
  5. SORBITOL [Concomitant]
     Indication: CONSTIPATION
     Route: 042
     Dates: start: 20110620
  6. FENTANYL CITRATE [Suspect]
     Indication: PAIN
     Route: 062
     Dates: start: 20110617, end: 20110704

REACTIONS (10)
  - WRONG TECHNIQUE IN DRUG USAGE PROCESS [None]
  - FALL [None]
  - DRUG INTOLERANCE [None]
  - DIZZINESS [None]
  - DIARRHOEA [None]
  - SICK SINUS SYNDROME [None]
  - VOMITING [None]
  - CONSTIPATION [None]
  - RESPIRATORY DEPRESSION [None]
  - DELIRIUM [None]
